FAERS Safety Report 9773490 (Version 1)
Quarter: 2013Q4

REPORT INFORMATION
  Report Type: Spontaneous
  Country: IT (occurrence: None)
  Receive Date: 20131217
  Receipt Date: 20131217
  Transmission Date: 20140711
  Serious: Yes (Other)
  Sender: FDA-Public Use
  Company Number: SYM-2013-13953

PATIENT
  Age: 87 Year
  Sex: Male

DRUGS (10)
  1. TIMOPTOL [Suspect]
     Indication: GLAUCOMA
     Dosage: 2 GTT, 1 IN 1 D, OPHTHALMIC
     Route: 047
     Dates: start: 20100101, end: 20130915
  2. ENALAPRIL MALEATE (ENALAPRIL MALEATE) (TABLET) (ENALAPRIL MALEATE) [Concomitant]
  3. OXCARBAZEPINE (OXCARBAZEPINE) (TABLET) (OXCARBAZEPINE) [Concomitant]
  4. FUROSEMIDE (FUROSEMIDE) (TABLETL) (FUROSEMIDE) [Concomitant]
  5. CARDIOASPIRIN (ACETYLSALICYLIC ACID) (TABLET) (ACETYLSALICYLIC ACID) [Concomitant]
  6. ATORVASTATIN ACTAVIS (ATRORVASTATIN CALCIUM) (TABLET) (ATORVASTATIN CALCIUM) [Concomitant]
  7. NORVASC (AMLODIPINE BESILATE) (TABLET) (AMLODIPINE BESILATE) [Concomitant]
  8. PANTOPRAZOLE (PANTOPRAZOLE) (TABLET) (PANTOPRAZOLE) [Concomitant]
  9. NITROGLYCERIN (GLYCERYL TRINITRATE) (TRANSDERMAL PATCH) (GLYCERYL TRINITRATE)? [Concomitant]
  10. PROMAZINE HYDROCHLORIDE (PROMAZINE HYDROCHLORIDE) (TABLET) (PROMAZINE HYDROCHLORIDE) [Concomitant]

REACTIONS (1)
  - Atrial fibrillation [None]
